FAERS Safety Report 7779552-X (Version None)
Quarter: 2011Q3

REPORT INFORMATION
  Report Type: 
  Country: None (occurrence: None)
  Receive Date: 20110927
  Receipt Date: 20110913
  Transmission Date: 20111222
  Serious: Yes (Other)
  Sender: FDA-Public Use
  Company Number: PHHY2011BR82482

PATIENT
  Age: 78 Year
  Sex: Male
  Weight: 90 kg

DRUGS (3)
  1. RASILEZ [Suspect]
     Dosage: 300 MG,
     Dates: start: 20110401
  2. AMLODIPINE [Concomitant]
     Dosage: 5 MG,
     Dates: start: 20100505
  3. INDAPAMIDE [Concomitant]
     Dates: start: 20100505

REACTIONS (3)
  - BLOOD UREA INCREASED [None]
  - CREATININE RENAL CLEARANCE DECREASED [None]
  - BLOOD CREATININE INCREASED [None]
